FAERS Safety Report 5679708-6 (Version None)
Quarter: 2008Q1

REPORT INFORMATION
  Report Type: 
  Country: None (occurrence: None)
  Receive Date: 20080325
  Receipt Date: 20080310
  Transmission Date: 20080703
  Serious: Yes (Hospitalization, Other)
  Sender: FDA-Public Use
  Company Number: JP-GENENTECH-257806

PATIENT
  Sex: Male

DRUGS (4)
  1. AVASTIN [Suspect]
     Indication: COLORECTAL CANCER METASTATIC
     Dosage: 300 MG, Q2W
     Route: 042
     Dates: start: 20080220, end: 20080310
  2. OXALIPLATIN [Concomitant]
     Indication: COLORECTAL CANCER METASTATIC
  3. FLUOROURACIL [Concomitant]
     Indication: COLORECTAL CANCER METASTATIC
  4. ISOVORIN [Concomitant]
     Indication: COLORECTAL CANCER METASTATIC

REACTIONS (3)
  - GENERAL PHYSICAL HEALTH DETERIORATION [None]
  - HAEMOGLOBIN DECREASED [None]
  - TUMOUR HAEMORRHAGE [None]
